FAERS Safety Report 6189662-9 (Version None)
Quarter: 2009Q2

REPORT INFORMATION
  Report Type: 
  Country: None (occurrence: None)
  Receive Date: 20090514
  Receipt Date: 20090505
  Transmission Date: 20091009
  Serious: Yes (Hospitalization)
  Sender: FDA-Public Use
  Company Number: FR-ELI_LILLY_AND_COMPANY-FR200905000644

PATIENT
  Sex: Male

DRUGS (5)
  1. ALIMTA [Suspect]
     Indication: LUNG NEOPLASM MALIGNANT
     Dosage: UNK, UNKNOWN
     Route: 042
     Dates: start: 20081001, end: 20081201
  2. CISPLATIN [Concomitant]
     Indication: LUNG NEOPLASM MALIGNANT
     Dosage: UNK, UNKNOWN
     Route: 042
     Dates: start: 20081001, end: 20081201
  3. AVASTIN [Concomitant]
     Indication: LUNG NEOPLASM MALIGNANT
     Dosage: UNK, UNKNOWN
     Route: 042
     Dates: start: 20081001, end: 20081201
  4. TARCEVA [Concomitant]
     Dosage: UNK, UNKNOWN
     Route: 065
     Dates: start: 20081201
  5. TARCEVA [Concomitant]
     Dosage: UNK, UNKNOWN
     Route: 065
     Dates: start: 20090201

REACTIONS (7)
  - ASTHENIA [None]
  - DERMATITIS [None]
  - HIP SURGERY [None]
  - HYPOACUSIS [None]
  - LUNG DISORDER [None]
  - OEDEMA PERIPHERAL [None]
  - RASH [None]
